FAERS Safety Report 25009482 (Version 1)
Quarter: 2025Q1

REPORT INFORMATION
  Report Type: Spontaneous
  Country: HR (occurrence: HR)
  Receive Date: 20250225
  Receipt Date: 20250225
  Transmission Date: 20250409
  Serious: Yes (Hospitalization, Other)
  Sender: RANBAXY
  Company Number: HR-SUN PHARMACEUTICAL INDUSTRIES LTD-2025R1-495457

PATIENT
  Age: 8 Year
  Sex: Female

DRUGS (3)
  1. METHYLPREDNISOLONE [Suspect]
     Active Substance: METHYLPREDNISOLONE
     Indication: Dermatomyositis
     Dosage: 30 MILLIMOLE PER KILOGRAM, 3 DAY
     Route: 065
  2. METHYLPREDNISOLONE [Suspect]
     Active Substance: METHYLPREDNISOLONE
     Dosage: 2 MILLIMOLE PER KILOGRAM, QD
     Route: 065
  3. METHOTREXATE [Suspect]
     Active Substance: METHOTREXATE
     Indication: Dermatomyositis
     Dosage: 15 MICROGRAM/SQ. METER, WEEKLY
     Route: 065

REACTIONS (1)
  - Disease progression [Unknown]
